FAERS Safety Report 6771641-1 (Version None)
Quarter: 2010Q2

REPORT INFORMATION
  Report Type: 
  Country: None (occurrence: None)
  Receive Date: 20100611
  Receipt Date: 20100531
  Transmission Date: 20101027
  Serious: Yes (Other)
  Sender: FDA-Public Use
  Company Number: B0659698A

PATIENT
  Age: 36 Year
  Sex: Male

DRUGS (5)
  1. ABACAVIR SULFATE [Suspect]
     Indication: HIV INFECTION
     Dates: start: 20090301
  2. LAMIVUDINE-HIV [Concomitant]
  3. NEVIRAPINE [Concomitant]
  4. ZIDOVUDINE [Concomitant]
  5. ATAZANAVIR [Concomitant]

REACTIONS (7)
  - AGRANULOCYTOSIS [None]
  - DIARRHOEA [None]
  - HEADACHE [None]
  - MOUTH ULCERATION [None]
  - OROPHARYNGEAL PAIN [None]
  - PNEUMOCYSTIS JIROVECI PNEUMONIA [None]
  - RASH [None]
